FAERS Safety Report 17005609 (Version 3)
Quarter: 2019Q4

REPORT INFORMATION
  Report Type: Spontaneous
  Country: JP (occurrence: JP)
  Receive Date: 20191107
  Receipt Date: 20191209
  Transmission Date: 20200122
  Serious: Yes (Death, Life-Threatening, Hospitalization, Other)
  Sender: FDA-Public Use
  Company Number: JP-ASTRAZENECA-2019SF00204

PATIENT
  Age: 960 Month
  Sex: Female
  Weight: 42 kg

DRUGS (2)
  1. TAGRISSO [Suspect]
     Active Substance: OSIMERTINIB
     Indication: NON-SMALL CELL LUNG CANCER
     Route: 048
     Dates: start: 20190219, end: 20190704
  2. CRESTOR [Suspect]
     Active Substance: ROSUVASTATIN CALCIUM
     Indication: HYPERLIPIDAEMIA
     Route: 048
     Dates: start: 2017

REACTIONS (7)
  - Non-small cell lung cancer [Fatal]
  - Metastases to pleura [Unknown]
  - Ovarian cancer [Fatal]
  - Metastases to peritoneum [Unknown]
  - Malignant neoplasm progression [Unknown]
  - Cardiac failure [Not Recovered/Not Resolved]
  - Intestinal obstruction [Unknown]

NARRATIVE: CASE EVENT DATE: 201812
